FAERS Safety Report 20307052 (Version 1)
Quarter: 2022Q1

REPORT INFORMATION
  Report Type: Report from Study
  Country: ZA (occurrence: ZA)
  Receive Date: 20220107
  Receipt Date: 20220107
  Transmission Date: 20220424
  Serious: Yes (Death)
  Sender: FDA-Public Use
  Company Number: ZA-ABBVIE-22K-143-4223800-00

PATIENT
  Age: 74 Year
  Sex: Female

DRUGS (1)
  1. HUMIRA [Suspect]
     Active Substance: ADALIMUMAB
     Indication: Rheumatoid arthritis
     Route: 058
     Dates: start: 20210426, end: 20211208

REACTIONS (1)
  - Multiple organ dysfunction syndrome [Fatal]
